FAERS Safety Report 9230265 (Version 2)
Quarter: 2013Q2

REPORT INFORMATION
  Report Type: Report from Study
  Country: AU (occurrence: AU)
  Receive Date: 20130415
  Receipt Date: 20130624
  Transmission Date: 20140414
  Serious: Yes (Other)
  Sender: FDA-Public Use
  Company Number: PHHY2013AU035092

PATIENT
  Age: 77 Year
  Sex: Female

DRUGS (1)
  1. ACLASTA [Suspect]
     Dosage: 5 MG, UNK
     Route: 042
     Dates: start: 20120412

REACTIONS (5)
  - Pseudomonas infection [Unknown]
  - Staphylococcal infection [Unknown]
  - Vitamin D deficiency [Unknown]
  - Anaemia [Unknown]
  - Constipation [Unknown]
